FAERS Safety Report 7285696-1 (Version None)
Quarter: 2011Q1

REPORT INFORMATION
  Report Type: 
  Country: None (occurrence: None)
  Receive Date: 20110210
  Receipt Date: 20110201
  Transmission Date: 20110831
  Serious: Yes (Hospitalization)
  Sender: FDA-Public Use
  Company Number: B0698513A

PATIENT
  Age: 49 Year
  Sex: Female

DRUGS (1)
  1. AVANDIA [Suspect]
     Dosage: 8MG PER DAY
     Route: 048
     Dates: start: 19990101

REACTIONS (9)
  - PAIN [None]
  - HEPATIC STEATOSIS [None]
  - CONSTIPATION [None]
  - CARDIAC FAILURE CONGESTIVE [None]
  - MITRAL VALVE INCOMPETENCE [None]
  - HYPERTENSION [None]
  - WEIGHT INCREASED [None]
  - MYOCARDIAL INFARCTION [None]
  - ABNORMAL FAECES [None]
